FAERS Safety Report 10862150 (Version 1)
Quarter: 2015Q1

REPORT INFORMATION
  Report Type: Spontaneous
  Country: DK (occurrence: DK)
  Receive Date: 20150224
  Receipt Date: 20150224
  Transmission Date: 20150721
  Serious: Yes (Death)
  Sender: FDA-Public Use
  Company Number: DK-SA-2015SA020517

PATIENT
  Sex: Male

DRUGS (9)
  1. SOLOSTAR [Concomitant]
     Active Substance: DEVICE
     Dates: end: 20141228
  2. METFORMIN [Concomitant]
     Active Substance: METFORMIN HYDROCHLORIDE
     Indication: DIABETES MELLITUS
     Route: 048
  3. SIMVASTATIN. [Concomitant]
     Active Substance: SIMVASTATIN
     Route: 048
  4. HJERTEMAGNYL [Concomitant]
     Active Substance: ASPIRIN\MAGNESIUM OXIDE
     Route: 048
  5. ENALAPRIL/HYDROCHLOROTHIAZIDE [Concomitant]
     Route: 048
  6. CORODIL [Concomitant]
     Active Substance: DIPYRIDAMOLE
     Route: 048
  7. LANTUS SOLOSTAR [Suspect]
     Active Substance: INSULIN GLARGINE
     Indication: DIABETES MELLITUS
     Dosage: DOSE:32 UNIT(S)
     Route: 030
     Dates: end: 20141228
  8. LANTUS SOLOSTAR [Suspect]
     Active Substance: INSULIN GLARGINE
     Indication: DIABETES MELLITUS
     Dosage: DOSE:12 UNIT(S)
     Route: 030
     Dates: start: 20141119
  9. SOLOSTAR [Concomitant]
     Active Substance: DEVICE
     Dates: start: 20141119

REACTIONS (4)
  - Blood glucose increased [Unknown]
  - Cold sweat [Recovered/Resolved]
  - Death [Fatal]
  - Malaise [Recovered/Resolved]

NARRATIVE: CASE EVENT DATE: 2014
